FAERS Safety Report 18271496 (Version 1)
Quarter: 2020Q3

REPORT INFORMATION
  Report Type: Spontaneous
  Country: RU (occurrence: RU)
  Receive Date: 20200916
  Receipt Date: 20200916
  Transmission Date: 20201103
  Serious: Yes (Other)
  Sender: FDA-Public Use
  Company Number: RU-ROCHE-2676329

PATIENT
  Sex: Female

DRUGS (2)
  1. VEMURAFENIB. [Suspect]
     Active Substance: VEMURAFENIB
     Indication: METASTATIC MALIGNANT MELANOMA
     Route: 048
     Dates: start: 201908
  2. COBIMETINIB. [Suspect]
     Active Substance: COBIMETINIB
     Indication: METASTATIC MALIGNANT MELANOMA
     Dosage: FROM DAY 1 TO DAY 21
     Route: 065
     Dates: start: 201909

REACTIONS (5)
  - Diarrhoea [Unknown]
  - Gastritis erosive [Unknown]
  - Myalgia [Unknown]
  - Arthralgia [Unknown]
  - Skin mass [Unknown]
